FAERS Safety Report 15202236 (Version 2)
Quarter: 2018Q3

REPORT INFORMATION
  Report Type: Report from Study
  Country: CA (occurrence: CA)
  Receive Date: 20180726
  Receipt Date: 20180810
  Transmission Date: 20181010
  Serious: Yes (Other)
  Sender: FDA-Public Use
  Company Number: CA-JNJFOC-20180536976

PATIENT
  Age: 32 Year
  Sex: Female

DRUGS (4)
  1. AMOXICILLIN. [Suspect]
     Active Substance: AMOXICILLIN
     Indication: PHARYNGITIS
     Route: 065
  2. AMOXICILLIN. [Suspect]
     Active Substance: AMOXICILLIN
     Indication: EAR INFECTION
     Route: 065
  3. SIMPONI [Suspect]
     Active Substance: GOLIMUMAB
     Indication: ANKYLOSING SPONDYLITIS
     Dosage: STRENGTH = 50 MG
     Route: 058
     Dates: start: 20180430
  4. AMOXICILLIN. [Suspect]
     Active Substance: AMOXICILLIN
     Indication: SINUSITIS
     Route: 065

REACTIONS (13)
  - Uveitis [Recovered/Resolved]
  - Ear infection [Unknown]
  - Sinusitis [Unknown]
  - Sunburn [Unknown]
  - Psoriasis [Recovering/Resolving]
  - Pharyngitis [Unknown]
  - Pharyngitis streptococcal [Recovered/Resolved]
  - Blister [Not Recovered/Not Resolved]
  - Ingrown hair [Unknown]
  - Skin disorder [Recovering/Resolving]
  - Nausea [Unknown]
  - Therapeutic response decreased [Unknown]
  - Haematemesis [Unknown]

NARRATIVE: CASE EVENT DATE: 2018
